FAERS Safety Report 9377794 (Version 1)
Quarter: 2013Q3

REPORT INFORMATION
  Report Type: Spontaneous
  Country: US (occurrence: US)
  Receive Date: 20130701
  Receipt Date: 20130701
  Transmission Date: 20140515
  Serious: No
  Sender: FDA-Public Use
  Company Number: US-GLAXOSMITHKLINE-A1002123A

PATIENT
  Sex: Female

DRUGS (2)
  1. IMITREX [Suspect]
     Indication: MIGRAINE
     Route: 065
  2. IMITREX [Suspect]
     Indication: MIGRAINE
     Route: 065

REACTIONS (3)
  - Drug ineffective [Unknown]
  - Migraine [Unknown]
  - Vomiting [Unknown]
